FAERS Safety Report 23300750 (Version 1)
Quarter: 2023Q4

REPORT INFORMATION
  Report Type: Spontaneous
  Country: IT (occurrence: IT)
  Receive Date: 20231215
  Receipt Date: 20231215
  Transmission Date: 20240110
  Serious: Yes (Hospitalization)
  Sender: FDA-Public Use
  Company Number: None

PATIENT
  Age: 51 Year
  Sex: Female
  Weight: 52 kg

DRUGS (2)
  1. LANSOPRAZOLE [Suspect]
     Active Substance: LANSOPRAZOLE
     Indication: Product used for unknown indication
     Dosage: 30 MILLIGRAM, QD, TOOK LANSOPRAZOLE 30 MG ONE TABLET DAILY
     Route: 048
     Dates: start: 20231113, end: 20231114
  2. LIVIAL [Concomitant]
     Active Substance: TIBOLONE
     Dosage: UNK
     Route: 065

REACTIONS (5)
  - Paraesthesia oral [Recovered/Resolved]
  - Dyspnoea [Recovered/Resolved]
  - Presyncope [Recovered/Resolved]
  - Lip oedema [Recovered/Resolved]
  - Rash [Recovered/Resolved]

NARRATIVE: CASE EVENT DATE: 20231114
